FAERS Safety Report 8488584-8 (Version None)
Quarter: 2012Q2

REPORT INFORMATION
  Report Type: 
  Country: None (occurrence: None)
  Receive Date: 20120626
  Receipt Date: 20100611
  Transmission Date: 20120825
  Serious: Yes (Hospitalization, Disabling, Other)
  Sender: FDA-Public Use
  Company Number: 2011MA008101

PATIENT
  Sex: Male
  Weight: 74.8435 kg

DRUGS (30)
  1. MOTRIN [Concomitant]
  2. PANTOPRAZOLE [Concomitant]
  3. ZANTAC [Concomitant]
  4. ALFUSION [Concomitant]
  5. MELOXICAM [Concomitant]
  6. MIDAZOLAM [Concomitant]
  7. DOCUSATE [Concomitant]
  8. KLONOPIN [Concomitant]
  9. NIFEDIPINE [Concomitant]
  10. RANITIDINE [Concomitant]
  11. ALFAZOSIN [Concomitant]
  12. MILK OF MAGNESIA TAB [Concomitant]
  13. PROTONIX [Concomitant]
  14. VARDENAFIL HYDROCHLORIDE (LEVITRA) [Concomitant]
  15. GLYCOLAX [Concomitant]
  16. XALATAN [Concomitant]
  17. PROSCAR [Concomitant]
  18. SINEMET [Concomitant]
  19. BACLOFEN [Concomitant]
  20. CARBIDOPA + LEVODOPA [Concomitant]
  21. DULCOLAX [Concomitant]
  22. ELAVIL [Concomitant]
  23. FUMARATE [Concomitant]
  24. LEVITRA [Concomitant]
  25. MIRAPEX [Concomitant]
  26. NEXIUM [Concomitant]
  27. METOCLOPRAMIDE [Suspect]
     Dosage: 10 MG; PO
     Route: 048
     Dates: start: 20061201, end: 20071201
  28. KETOTIFEN FUMARATE [Concomitant]
  29. METAMUCIL-2 [Concomitant]
  30. NORTRIPTYLINE HCL [Concomitant]

REACTIONS (45)
  - ASTHENIA [None]
  - LUMBAR RADICULOPATHY [None]
  - SPINAL OSTEOARTHRITIS [None]
  - DYSGEUSIA [None]
  - HEADACHE [None]
  - MUSCULOSKELETAL STIFFNESS [None]
  - GLAUCOMA [None]
  - MICROCYTOSIS [None]
  - FALL [None]
  - RASH [None]
  - ERYTHEMA [None]
  - SCAR [None]
  - MUSCLE TIGHTNESS [None]
  - JOINT RANGE OF MOTION DECREASED [None]
  - GASTROOESOPHAGEAL REFLUX DISEASE [None]
  - DYSPEPSIA [None]
  - OSTEOARTHRITIS [None]
  - CONDITION AGGRAVATED [None]
  - SPEECH DISORDER [None]
  - PAIN [None]
  - WHITE BLOOD CELL COUNT DECREASED [None]
  - COUGH [None]
  - ABDOMINAL PAIN UPPER [None]
  - ANXIETY [None]
  - PRE-EXISTING DISEASE [None]
  - EMOTIONAL DISORDER [None]
  - BALANCE DISORDER [None]
  - PAIN IN EXTREMITY [None]
  - BENIGN PROSTATIC HYPERPLASIA [None]
  - PARKINSONISM [None]
  - MUSCULOSKELETAL PAIN [None]
  - ARTHROPATHY [None]
  - THROAT IRRITATION [None]
  - TENDERNESS [None]
  - HIATUS HERNIA [None]
  - CHEST PAIN [None]
  - NUCLEAR MAGNETIC RESONANCE IMAGING BRAIN ABNORMAL [None]
  - TREMOR [None]
  - HETEROPHORIA [None]
  - INTERVERTEBRAL DISC PROTRUSION [None]
  - BRADYKINESIA [None]
  - CONSTIPATION [None]
  - IRRITABLE BOWEL SYNDROME [None]
  - CHROMATOPSIA [None]
  - OSTEOSCLEROSIS [None]
